FAERS Safety Report 23944543 (Version 1)
Quarter: 2024Q2

REPORT INFORMATION
  Report Type: Spontaneous
  Country: NL (occurrence: NL)
  Receive Date: 20240606
  Receipt Date: 20240606
  Transmission Date: 20240716
  Serious: Yes (Other)
  Sender: FDA-Public Use
  Company Number: NL-EMA-DD-20190329-hv_a-122749

PATIENT
  Age: 68 Year
  Sex: Female

DRUGS (7)
  1. PREGABALIN [Suspect]
     Active Substance: PREGABALIN
     Indication: Arthralgia
     Dosage: UNK
     Route: 065
  2. PREGABALIN [Suspect]
     Active Substance: PREGABALIN
     Dosage: 300 MG, 2X/DAY
     Route: 048
     Dates: start: 20051013
  3. FENTANYL CITRATE [Suspect]
     Active Substance: FENTANYL CITRATE
     Indication: Back pain
     Dosage: 100 MICROGRAM, 1DOSE/1HOUR
     Route: 050
     Dates: start: 20060309
  4. FENTANYL CITRATE [Suspect]
     Active Substance: FENTANYL CITRATE
     Indication: Arthralgia
     Dosage: UNK
     Route: 065
  5. FENTANYL CITRATE [Suspect]
     Active Substance: FENTANYL CITRATE
     Indication: Arthralgia
  6. OXYCODONE HYDROCHLORIDE [Suspect]
     Active Substance: OXYCODONE HYDROCHLORIDE
     Indication: Back pain
     Dosage: 5 MG, 2X/DAY
     Route: 048
     Dates: start: 20060309
  7. OXYCODONE HYDROCHLORIDE [Suspect]
     Active Substance: OXYCODONE HYDROCHLORIDE
     Indication: Arthralgia
     Dosage: UNK
     Route: 065

REACTIONS (1)
  - Retinitis [Not Recovered/Not Resolved]

NARRATIVE: CASE EVENT DATE: 20060101
